FAERS Safety Report 16063066 (Version 1)
Quarter: 2019Q1

REPORT INFORMATION
  Report Type: Spontaneous
  Country: US (occurrence: US)
  Receive Date: 20190312
  Receipt Date: 20190312
  Transmission Date: 20190418
  Serious: No
  Sender: FDA-Public Use
  Company Number: US-TEVA-2019-US-1020583

PATIENT
  Sex: Male

DRUGS (1)
  1. PROAIR HFA [Suspect]
     Active Substance: ALBUTEROL SULFATE
     Indication: CHRONIC OBSTRUCTIVE PULMONARY DISEASE
     Dosage: FOR APPROXIMATELY 5 YEARS

REACTIONS (6)
  - Heart rate increased [Unknown]
  - Blood pressure increased [Unknown]
  - Dizziness [Unknown]
  - Dry mouth [Unknown]
  - Device issue [Unknown]
  - Wrong dose [Unknown]
